FAERS Safety Report 7959507-2 (Version None)
Quarter: 2011Q4

REPORT INFORMATION
  Report Type: 
  Country: None (occurrence: None)
  Receive Date: 20111206
  Receipt Date: 20111201
  Transmission Date: 20120403
  Serious: No
  Sender: FDA-Public Use
  Company Number: US-PFIZER INC-2011294222

PATIENT
  Sex: Female
  Weight: 74.83 kg

DRUGS (2)
  1. NEURONTIN [Suspect]
     Indication: MUSCULAR WEAKNESS
     Dosage: 300 MG, 3X/DAY
     Dates: end: 20111101
  2. NEURONTIN [Suspect]
     Indication: BACK PAIN

REACTIONS (8)
  - WITHDRAWAL SYNDROME [None]
  - PRURITUS [None]
  - TREMOR [None]
  - COORDINATION ABNORMAL [None]
  - PARAESTHESIA [None]
  - SOMNOLENCE [None]
  - HERPES ZOSTER [None]
  - SPEECH DISORDER [None]
